FAERS Safety Report 12391503 (Version 3)
Quarter: 2016Q3

REPORT INFORMATION
  Report Type: Report from Study
  Country: US (occurrence: US)
  Receive Date: 20160521
  Receipt Date: 20160722
  Transmission Date: 20161109
  Serious: Yes (Death, Other)
  Sender: FDA-Public Use
  Company Number: US-AMGEN-USASP2016063533

PATIENT
  Age: 52 Year
  Sex: Female

DRUGS (2)
  1. ENBREL [Suspect]
     Active Substance: ETANERCEPT
     Indication: RHEUMATOID ARTHRITIS
     Dosage: 50 MG, QWK
     Route: 058
     Dates: start: 20151016, end: 201605
  2. METHOTREXATE. [Concomitant]
     Active Substance: METHOTREXATE

REACTIONS (7)
  - Respiratory failure [Fatal]
  - Musculoskeletal disorder [Unknown]
  - Pain [Unknown]
  - Abnormal behaviour [Unknown]
  - Arthralgia [Unknown]
  - Haemorrhage [Unknown]
  - Musculoskeletal pain [Unknown]

NARRATIVE: CASE EVENT DATE: 20160503
